FAERS Safety Report 16349825 (Version 1)
Quarter: 2019Q2

REPORT INFORMATION
  Report Type: Spontaneous
  Country: RO (occurrence: RO)
  Receive Date: 20190523
  Receipt Date: 20190523
  Transmission Date: 20190711
  Serious: Yes (Hospitalization, Other)
  Sender: FDA-Public Use
  Company Number: RO-TOPROL ACQUISITION LLC-2019-TOP-000126

PATIENT
  Age: 61 Year
  Sex: Male

DRUGS (2)
  1. METOPROLOL SUCCINATE. [Suspect]
     Active Substance: METOPROLOL SUCCINATE
     Indication: CORONARY ARTERY DISEASE
     Dosage: 200 MG, QD
     Route: 048
  2. METOPROLOL SUCCINATE. [Suspect]
     Active Substance: METOPROLOL SUCCINATE
     Dosage: DOWN-TITRATION WAS PERFORMED OVER THE FOLLOWING WEEKS TO AS LOW AS 50 MG/DAY
     Route: 048

REACTIONS (2)
  - Sinus arrest [Recovered/Resolved]
  - Syncope [Unknown]
